FAERS Safety Report 5143063-0 (Version None)
Quarter: 2006Q4

REPORT INFORMATION
  Report Type: 
  Country: None (occurrence: None)
  Receive Date: 20061101
  Receipt Date: 20061101
  Transmission Date: 20070319
  Serious: Yes (Death)
  Sender: FDA-Public Use
  Company Number: None

PATIENT
  Weight: 78 kg

DRUGS (3)
  1. CLOFERABINE [Suspect]
     Indication: ACUTE MYELOID LEUKAEMIA
     Dosage: 38MG DAILY IV
     Route: 042
     Dates: start: 20060724, end: 20060728
  2. MELPHALAN [Suspect]
     Dosage: 190 TIMES ONE IV
     Route: 042
     Dates: start: 20060729, end: 20060729
  3. CANPATH [Concomitant]

REACTIONS (3)
  - LEUKAEMIA RECURRENT [None]
  - MULTI-ORGAN FAILURE [None]
  - PSEUDOMONAL SEPSIS [None]
